FAERS Safety Report 15838842 (Version 1)
Quarter: 2019Q1

REPORT INFORMATION
  Report Type: Spontaneous
  Country: US (occurrence: US)
  Receive Date: 20190117
  Receipt Date: 20190117
  Transmission Date: 20190417
  Serious: No
  Sender: FDA-Public Use
  Company Number: US-ASTRAZENECA-2019SE05287

PATIENT
  Age: 17519 Day
  Sex: Male
  Weight: 107 kg

DRUGS (2)
  1. XIGDUO XR [Suspect]
     Active Substance: DAPAGLIFLOZIN PROPANEDIOL\METFORMIN HYDROCHLORIDE
     Indication: TYPE 2 DIABETES MELLITUS
     Route: 048
     Dates: start: 20181221, end: 20190106
  2. XIGDUO XR [Suspect]
     Active Substance: DAPAGLIFLOZIN PROPANEDIOL\METFORMIN HYDROCHLORIDE
     Indication: TYPE 2 DIABETES MELLITUS
     Route: 048

REACTIONS (12)
  - Visual impairment [Not Recovered/Not Resolved]
  - Paraesthesia [Recovering/Resolving]
  - Abdominal pain upper [Recovered/Resolved]
  - Off label use [Recovered/Resolved with Sequelae]
  - Tension [Unknown]
  - Feeling abnormal [Recovering/Resolving]
  - Ocular hyperaemia [Unknown]
  - Headache [Recovering/Resolving]
  - Asthenia [Recovering/Resolving]
  - Pain [Recovered/Resolved]
  - Intentional product misuse [Recovering/Resolving]
  - Vision blurred [Not Recovered/Not Resolved]

NARRATIVE: CASE EVENT DATE: 20181221
